FAERS Safety Report 4874860-4 (Version None)
Quarter: 2006Q1

REPORT INFORMATION
  Report Type: 
  Country: None (occurrence: None)
  Receive Date: 20060104
  Receipt Date: 20051222
  Transmission Date: 20060701
  Serious: Yes (Hospitalization, Other)
  Sender: FDA-Public Use
  Company Number: 2005167908

PATIENT
  Age: 45 Year
  Sex: Female

DRUGS (2)
  1. LIPITOR [Suspect]
     Indication: BLOOD CHOLESTEROL
     Dosage: 10 MG (10 MG, 1 IN 1 D), ORAL
     Route: 048
     Dates: start: 20050201, end: 20051001
  2. HOMEOPATHIC PREPARATION (HOMEOPATHIC PREPARATION) [Concomitant]

REACTIONS (4)
  - GALLBLADDER POLYP [None]
  - HEPATIC ENZYME ABNORMAL [None]
  - MALAISE [None]
  - MYALGIA [None]
